APPROVED DRUG PRODUCT: ROXICODONE
Active Ingredient: OXYCODONE HYDROCHLORIDE
Strength: 10MG
Dosage Form/Route: TABLET, EXTENDED RELEASE;ORAL
Application: N020932 | Product #001
Applicant: ROXANE LABORATORIES INC
Approved: Oct 26, 1998 | RLD: No | RS: No | Type: DISCN